FAERS Safety Report 13121458 (Version 1)
Quarter: 2017Q1

REPORT INFORMATION
  Report Type: Spontaneous
  Country: US (occurrence: US)
  Receive Date: 20170114
  Receipt Date: 20170114
  Transmission Date: 20170428
  Serious: Yes (Life-Threatening, Other)
  Sender: FDA-Public Use
  Company Number: None

PATIENT
  Age: 27 Year
  Sex: Male
  Weight: 60.75 kg

DRUGS (15)
  1. PROVIGIL [Concomitant]
     Active Substance: MODAFINIL
  2. TESTOSTERONE. [Concomitant]
     Active Substance: TESTOSTERONE
  3. BOTOX [Concomitant]
     Active Substance: ONABOTULINUMTOXINA
  4. TYLENOL WITH CODEINE [Concomitant]
     Active Substance: ACETAMINOPHEN\CODEINE PHOSPHATE
  5. LYRICA [Concomitant]
     Active Substance: PREGABALIN
  6. ATARAX [Concomitant]
     Active Substance: HYDROXYZINE HYDROCHLORIDE
  7. ALBUTEROL. [Concomitant]
     Active Substance: ALBUTEROL
  8. BUPROPRION XL [Suspect]
     Active Substance: BUPROPION
     Indication: DEPRESSION
     Dosage: QUANTITY:6 TABLET(S); DAILY; ORAL?
     Route: 048
     Dates: start: 20170107, end: 20170112
  9. ZYRTEC [Concomitant]
     Active Substance: CETIRIZINE HYDROCHLORIDE
  10. WELLBUTRIN [Concomitant]
     Active Substance: BUPROPION HYDROCHLORIDE
  11. RANITIDINE. [Concomitant]
     Active Substance: RANITIDINE
  12. ACEBUTOLOL [Concomitant]
     Active Substance: ACEBUTOLOL
  13. RELPAX [Concomitant]
     Active Substance: ELETRIPTAN HYDROBROMIDE
  14. VALIUM [Concomitant]
     Active Substance: DIAZEPAM
  15. FLUDROCORTISONE [Concomitant]
     Active Substance: FLUDROCORTISONE

REACTIONS (11)
  - Anxiety [None]
  - Fatigue [None]
  - Self-injurious ideation [None]
  - Confusional state [None]
  - Suicidal ideation [None]
  - Insomnia [None]
  - Nausea [None]
  - Product substitution issue [None]
  - Tachycardia [None]
  - Night sweats [None]
  - Depression [None]

NARRATIVE: CASE EVENT DATE: 20170110
